FAERS Safety Report 8987317 (Version 1)
Quarter: 2012Q4

REPORT INFORMATION
  Report Type: Report from Study
  Country: CN (occurrence: CN)
  Receive Date: 20121226
  Receipt Date: 20121226
  Transmission Date: 20130627
  Serious: Yes (Other)
  Sender: FDA-Public Use
  Company Number: CN-ROCHE-1174143

PATIENT
  Age: 68 Year
  Sex: Female
  Weight: 56 kg

DRUGS (2)
  1. PEG-INTERFERON ALFA 2A [Suspect]
     Indication: HEPATITIS C
     Route: 058
     Dates: start: 20100322, end: 201008
  2. PEG-INTERFERON ALFA 2A [Suspect]
     Route: 058
     Dates: start: 201008

REACTIONS (1)
  - Sjogren^s syndrome [Not Recovered/Not Resolved]
